FAERS Safety Report 12795242 (Version 1)
Quarter: 2016Q3

REPORT INFORMATION
  Report Type: Spontaneous
  Country: US (occurrence: US)
  Receive Date: 20160929
  Receipt Date: 20160929
  Transmission Date: 20161109
  Serious: Yes (Death, Other)
  Sender: FDA-Public Use
  Company Number: US-PFIZER INC-2016246771

PATIENT
  Age: 77 Year
  Sex: Female
  Weight: 67.6 kg

DRUGS (1)
  1. IBRANCE [Suspect]
     Active Substance: PALBOCICLIB
     Indication: BREAST CANCER
     Dosage: 125 MG, ONE PILL 21 DAYS ON 7 DAYS OFF, CYCLIC
     Route: 048
     Dates: start: 2016, end: 201605

REACTIONS (3)
  - Malaise [Not Recovered/Not Resolved]
  - Death [Fatal]
  - Renal disorder [Unknown]
